FAERS Safety Report 9179046 (Version 2)
Quarter: 2013Q3

REPORT INFORMATION
  Report Type: Report from Study
  Country: ZA (occurrence: ZA)
  Receive Date: 20130321
  Receipt Date: 20130916
  Transmission Date: 20140515
  Serious: Yes (Hospitalization)
  Sender: FDA-Public Use
  Company Number: ZA-ROCHE-1203257

PATIENT
  Sex: Male

DRUGS (2)
  1. MIRCERA [Suspect]
     Indication: NEPHROGENIC ANAEMIA
     Route: 058
     Dates: start: 20120618
  2. MIRCERA [Suspect]
     Route: 058
     Dates: start: 20130807

REACTIONS (2)
  - White blood cell count decreased [Unknown]
  - Confusional state [Unknown]
